FAERS Safety Report 6574887-0 (Version None)
Quarter: 2010Q1

REPORT INFORMATION
  Report Type: 
  Country: None (occurrence: None)
  Receive Date: 20100209
  Receipt Date: 20100202
  Transmission Date: 20100710
  Serious: Yes (Death)
  Sender: FDA-Public Use
  Company Number: PHEH2009US13373

PATIENT
  Sex: Male
  Weight: 64.49 kg

DRUGS (1)
  1. EXJADE [Suspect]
     Indication: IRON OVERLOAD
     Dosage: 750 UNK, QD
     Route: 048
     Dates: start: 20090914, end: 20090918

REACTIONS (1)
  - MALIGNANT NEOPLASM PROGRESSION [None]
